FAERS Safety Report 7381182-9 (Version None)
Quarter: 2011Q1

REPORT INFORMATION
  Report Type: 
  Country: None (occurrence: None)
  Receive Date: 20110324
  Receipt Date: 20110324
  Transmission Date: 20110831
  Serious: Yes (Life-Threatening, Hospitalization)
  Sender: FDA-Public Use
  Company Number: None

PATIENT
  Age: 26 Year
  Sex: Female
  Weight: 90.7194 kg

DRUGS (2)
  1. JOLESSA [Suspect]
     Indication: CONTRACEPTION
     Dosage: 1 PILL DAILY PO
     Route: 048
     Dates: start: 20100601, end: 20101108
  2. JOLESSA [Suspect]
     Indication: AMENORRHOEA
     Dosage: 1 PILL DAILY PO
     Route: 048
     Dates: start: 20100601, end: 20101108

REACTIONS (1)
  - PULMONARY EMBOLISM [None]
